FAERS Safety Report 10056478 (Version 2)
Quarter: 2014Q3

REPORT INFORMATION
  Report Type: Spontaneous
  Country: IT (occurrence: None)
  Receive Date: 20140401
  Receipt Date: 20140715
  Transmission Date: 20150326
  Serious: Yes (Hospitalization)
  Sender: FDA-Public Use
  Company Number: AUR-APL-2014-03863

PATIENT
  Age: 22 Year
  Sex: Female

DRUGS (7)
  1. SEREUPIN [Suspect]
     Active Substance: PAROXETINE HYDROCHLORIDE
     Indication: PRODUCT USED FOR UNKNOWN INDICATION
     Dates: start: 20140204, end: 20140204
  2. URSODEOXYCHOLIC ACID (URSODEOXYCHOLIC ACID) UNKNOWN) [Suspect]
     Active Substance: URSODIOL
     Indication: PRODUCT USED FOR UNKNOWN INDICATION
     Dates: start: 20140204, end: 20140204
  3. PLASIL (METOCLOPRAMIDE) [Suspect]
     Active Substance: METOCLOPRAMIDE
     Indication: PRODUCT USED FOR UNKNOWN INDICATION
     Dates: start: 20140204, end: 20140204
  4. VALDORM (FLURAZEPAM HYDROCHLORIDE) [Suspect]
     Active Substance: FLURAZEPAM HYDROCHLORIDE
     Indication: PRODUCT USED FOR UNKNOWN INDICATION
     Dosage: 1 DF, TOTAL
     Route: 048
     Dates: start: 20140204, end: 20140204
  5. PANTOPRAZOLE (PANTOPRAZOLE) [Suspect]
     Active Substance: PANTOPRAZOLE SODIUM
     Indication: PRODUCT USED FOR UNKNOWN INDICATION
     Dates: start: 20140204, end: 20140204
  6. OLANZAPINA [Suspect]
     Active Substance: OLANZAPINE
     Indication: PRODUCT USED FOR UNKNOWN INDICATION
     Dates: start: 20140204, end: 20140204
  7. DELORAZEPAM (DELORAZEPAM) [Suspect]
     Active Substance: DELORAZEPAM
     Indication: PRODUCT USED FOR UNKNOWN INDICATION
     Dates: start: 20140204, end: 20140204

REACTIONS (5)
  - Eyelid oedema [None]
  - Suicide attempt [None]
  - Disorientation [None]
  - Sopor [None]
  - Drug abuse [None]

NARRATIVE: CASE EVENT DATE: 20140204
